FAERS Safety Report 14104879 (Version 1)
Quarter: 2017Q4

REPORT INFORMATION
  Report Type: Spontaneous
  Country: US (occurrence: US)
  Receive Date: 20171018
  Receipt Date: 20171018
  Transmission Date: 20180321
  Serious: No
  Sender: FDA-Public Use
  Company Number: US-AMGEN-USASP2017138486

PATIENT
  Age: 78 Year
  Sex: Female

DRUGS (9)
  1. PROLIA [Suspect]
     Active Substance: DENOSUMAB
     Indication: OSTEOPOROSIS
     Dosage: UNK
     Route: 065
     Dates: start: 201702
  2. FISH OIL [Concomitant]
     Active Substance: FISH OIL
  3. VITAMIN B12 [Concomitant]
     Active Substance: CYANOCOBALAMIN
  4. DILTIAZEM HCL [Concomitant]
     Active Substance: DILTIAZEM HYDROCHLORIDE
     Dosage: 60 MG, QD
  5. CALCIUM + VITAMIN D [Concomitant]
     Active Substance: CALCIUM\VITAMIN D
     Dosage: 500 MG AND 2000 MG, QD
  6. VITAMIN C [Concomitant]
     Active Substance: ASCORBIC ACID
  7. MULTIVITAMIN [Concomitant]
     Active Substance: VITAMINS
  8. TURMERIC [Concomitant]
     Active Substance: HERBALS\TURMERIC
  9. CLARINEX [Concomitant]
     Active Substance: DESLORATADINE

REACTIONS (1)
  - Heart rate irregular [Unknown]

NARRATIVE: CASE EVENT DATE: 2017
